FAERS Safety Report 8035813-0 (Version None)
Quarter: 2011Q4

REPORT INFORMATION
  Report Type: 
  Country: None (occurrence: None)
  Receive Date: 20111202
  Receipt Date: 20111019
  Transmission Date: 20120403
  Serious: Yes (Other)
  Sender: FDA-Public Use
  Company Number: PHHY2011US58828

PATIENT
  Age: 79 Year
  Sex: Male

DRUGS (12)
  1. AVODART [Concomitant]
  2. ZANTAC [Concomitant]
  3. (ADENOSINE, ALLOPURINOL, GLUTATHIONE, MAGNESIUM SULFATE, POTASSIUM PHO [Concomitant]
  4. ASPIRIN [Concomitant]
  5. VESICARE [Concomitant]
  6. PANCREAS (PANCRELIPASE) [Concomitant]
  7. GLUCOSAMINE (GLUCOSAMINE ) [Concomitant]
  8. FANAPT [Suspect]
     Indication: PARANOIA
     Dosage: 1 MG, BID, ORAL, 2 MG, BID, ORAL , 4 MG, AT BEDTIME, ORAL, 6 MG
     Route: 048
     Dates: end: 20110605
  9. FANAPT [Suspect]
     Indication: PARANOIA
     Dosage: 1 MG, BID, ORAL, 2 MG, BID, ORAL , 4 MG, AT BEDTIME, ORAL, 6 MG
     Route: 048
     Dates: start: 20110526
  10. ALPRAZOLAM [Concomitant]
  11. AMBIEN [Concomitant]
  12. MULTIVITAMINS (ASCORBIC ACID, ERGOCALCIFEROL, FOLIC ACID, NICOTINAMIDE [Concomitant]

REACTIONS (4)
  - SEDATION [None]
  - DYSSTASIA [None]
  - DIZZINESS [None]
  - HYPOTENSION [None]
